FAERS Safety Report 9242127 (Version 1)
Quarter: 2013Q2

REPORT INFORMATION
  Report Type: Spontaneous
  Country: FR (occurrence: FR)
  Receive Date: 20130419
  Receipt Date: 20130419
  Transmission Date: 20140414
  Serious: Yes (Other)
  Sender: FDA-Public Use
  Company Number: FR-JNJFOC-20130408687

PATIENT
  Age: 60 Year
  Sex: Female

DRUGS (3)
  1. REMICADE [Suspect]
     Indication: PULMONARY SARCOIDOSIS
     Route: 042
  2. REMICADE [Suspect]
     Indication: PULMONARY SARCOIDOSIS
     Route: 042
  3. REMICADE [Suspect]
     Indication: PULMONARY SARCOIDOSIS
     Dosage: THIRD INFUSION
     Route: 042
     Dates: start: 20100506, end: 201005

REACTIONS (3)
  - Dermatitis bullous [Recovered/Resolved]
  - Off label use [Unknown]
  - Bronchitis [Recovered/Resolved]
